FAERS Safety Report 10258460 (Version 1)
Quarter: 2014Q2

REPORT INFORMATION
  Report Type: Not Available
  Country: SE (occurrence: SE)
  Receive Date: 20140625
  Receipt Date: 20140625
  Transmission Date: 20141212
  Serious: Yes (Hospitalization)
  Sender: FDA-Public Use
  Company Number: SE-NAPPMUNDI-GBR-2014-0018752

PATIENT
  Age: 67 Year
  Sex: Male

DRUGS (8)
  1. OXYNORM [Suspect]
     Indication: PRODUCT USED FOR UNKNOWN INDICATION
     Dosage: UNK
     Route: 048
  2. TROMBYL [Concomitant]
     Indication: ATRIAL FIBRILLATION
  3. TROMBYL [Concomitant]
     Indication: CARDIAC FAILURE
  4. ACTRAPID [Concomitant]
     Indication: PRODUCT USED FOR UNKNOWN INDICATION
     Dosage: 18.8 MMOL/L, UNK
  5. SELEXID                            /00445301/ [Concomitant]
     Indication: PRODUCT USED FOR UNKNOWN INDICATION
  6. CLAFORAN                           /00497602/ [Concomitant]
     Indication: PNEUMONIA
  7. FURIX [Concomitant]
     Indication: OEDEMA
  8. GLUCOSE [Suspect]
     Indication: PRODUCT USED FOR UNKNOWN INDICATION

REACTIONS (2)
  - Somnolence [Unknown]
  - Blood glucose increased [Unknown]
